FAERS Safety Report 16675094 (Version 1)
Quarter: 2019Q3

REPORT INFORMATION
  Report Type: Spontaneous
  Country: US (occurrence: US)
  Receive Date: 20190806
  Receipt Date: 20190806
  Transmission Date: 20191004
  Serious: Yes (Other)
  Sender: FDA-Public Use
  Company Number: US-MYLANLABS-2019M1069468

PATIENT
  Sex: Female

DRUGS (3)
  1. CLORAZEPATE DIPOTASSIUM TABLETS, USP [Suspect]
     Active Substance: CLORAZEPATE DIPOTASSIUM
     Indication: PRODUCT USED FOR UNKNOWN INDICATION
     Dosage: 0.5 DOSAGE FORM, BID (1/2 AM AND PM)
     Route: 065
  2. ATENOLOL. [Concomitant]
     Active Substance: ATENOLOL
     Indication: BLOOD PRESSURE ABNORMAL
     Dosage: UNK
  3. CLORAZEPATE DIPOTASSIUM TABLETS, USP [Suspect]
     Active Substance: CLORAZEPATE DIPOTASSIUM
     Dosage: 1-50 MG
     Route: 065

REACTIONS (14)
  - Abdominal discomfort [Unknown]
  - Anger [Unknown]
  - Blood magnesium decreased [Unknown]
  - Vision blurred [Unknown]
  - Accidental overdose [Unknown]
  - Renal impairment [Unknown]
  - Product dispensing error [Unknown]
  - Anxiety [Unknown]
  - Psychomotor hyperactivity [Unknown]
  - Dizziness [Unknown]
  - Dry mouth [Unknown]
  - Myocardial infarction [Unknown]
  - Mania [Recovered/Resolved]
  - Insomnia [Unknown]
